FAERS Safety Report 7375044-0 (Version None)
Quarter: 2011Q1

REPORT INFORMATION
  Report Type: 
  Country: None (occurrence: None)
  Receive Date: 20110317
  Receipt Date: 20110308
  Transmission Date: 20110831
  Serious: Yes (Hospitalization)
  Sender: FDA-Public Use
  Company Number: B0705632A

PATIENT
  Age: 65 Year
  Sex: Female

DRUGS (4)
  1. ANESTHETIC [Concomitant]
  2. TRASTUZUMAB (TRASTUZUMAB) [Suspect]
     Indication: BREAST CANCER
     Dates: start: 20060301, end: 20081001
  3. LAPATINIB (FORMULATION UNKNOWN) (GENERIC) (LAPATINIB) [Suspect]
     Indication: BREAST CANCER
     Dates: start: 20080810, end: 20090801
  4. DOCETAXEL (GENERIC) (DOCETAXEL) [Suspect]
     Indication: BREAST CANCER

REACTIONS (6)
  - CONDITION AGGRAVATED [None]
  - PULMONARY EMBOLISM [None]
  - ACUTE RESPIRATORY DISTRESS SYNDROME [None]
  - HAEMODYNAMIC INSTABILITY [None]
  - PLEURAL EFFUSION [None]
  - PNEUMONITIS [None]
